FAERS Safety Report 23842023 (Version 1)
Quarter: 2024Q2

REPORT INFORMATION
  Report Type: Spontaneous
  Country: CN (occurrence: CN)
  Receive Date: 20240510
  Receipt Date: 20240510
  Transmission Date: 20240716
  Serious: Yes (Other)
  Sender: FDA-Public Use
  Company Number: CN-PFIZER INC-PV202400060367

PATIENT
  Age: 37 Year
  Sex: Female

DRUGS (1)
  1. MEROPENEM [Suspect]
     Active Substance: MEROPENEM
     Dosage: 0.5 G, 2X/DAY
     Dates: start: 20240218, end: 20240224

REACTIONS (1)
  - Renal impairment [Recovering/Resolving]

NARRATIVE: CASE EVENT DATE: 20240223
